FAERS Safety Report 7883660-2 (Version None)
Quarter: 2011Q4

REPORT INFORMATION
  Report Type: 
  Country: None (occurrence: None)
  Receive Date: 20111102
  Receipt Date: 20111027
  Transmission Date: 20120403
  Serious: Yes (Other)
  Sender: FDA-Public Use
  Company Number: BR-PFIZER INC-2011263555

PATIENT
  Age: 85 Year
  Sex: Female

DRUGS (1)
  1. LIPITOR [Suspect]
     Dosage: UNK
     Route: 048

REACTIONS (6)
  - HYPERGLYCAEMIA [None]
  - DYSENTERY [None]
  - INFLUENZA [None]
  - VOMITING [None]
  - HYPOTENSION [None]
  - FEELING ABNORMAL [None]
